FAERS Safety Report 18452883 (Version 1)
Quarter: 2020Q4

REPORT INFORMATION
  Report Type: Spontaneous
  Country: US (occurrence: US)
  Receive Date: 20201102
  Receipt Date: 20201102
  Transmission Date: 20210114
  Serious: No
  Sender: FDA-Public Use
  Company Number: US-ELI_LILLY_AND_COMPANY-US202006012358

PATIENT
  Sex: Female

DRUGS (2)
  1. CYMBALTA [Suspect]
     Active Substance: DULOXETINE HYDROCHLORIDE
     Indication: PRODUCT USED FOR UNKNOWN INDICATION
     Dosage: UNK, UNKNOWN
     Route: 065
  2. CYMBALTA [Suspect]
     Active Substance: DULOXETINE HYDROCHLORIDE
     Dosage: 20 MG, DAILY
     Route: 065

REACTIONS (12)
  - Mobility decreased [Not Recovered/Not Resolved]
  - Anger [Unknown]
  - Depression [Unknown]
  - Crying [Unknown]
  - Drug ineffective [Unknown]
  - Nausea [Unknown]
  - Screaming [Unknown]
  - Blood pressure abnormal [Unknown]
  - Anxiety [Unknown]
  - Paraesthesia [Unknown]
  - Withdrawal syndrome [Unknown]
  - Pain of skin [Unknown]
